FAERS Safety Report 19978014 (Version 1)
Quarter: 2021Q4

REPORT INFORMATION
  Report Type: Spontaneous
  Country: US (occurrence: US)
  Receive Date: 20211021
  Receipt Date: 20211021
  Transmission Date: 20220303
  Serious: Yes (Other)
  Sender: FDA-Public Use
  Company Number: None

PATIENT
  Age: 3 Year
  Sex: Female
  Weight: 16.2 kg

DRUGS (1)
  1. MIRALAX [Suspect]
     Active Substance: POLYETHYLENE GLYCOL 3350
     Indication: Pollakiuria
     Dates: start: 20211006, end: 20211008

REACTIONS (3)
  - Psychomotor hyperactivity [None]
  - Blepharospasm [None]
  - Behaviour disorder [None]

NARRATIVE: CASE EVENT DATE: 20211006
